FAERS Safety Report 17992040 (Version 3)
Quarter: 2020Q3

REPORT INFORMATION
  Report Type: Spontaneous
  Country: GB (occurrence: GB)
  Receive Date: 20200707
  Receipt Date: 20200714
  Transmission Date: 20201103
  Serious: No
  Sender: FDA-Public Use
  Company Number: GB-009507513-2007GBR001173

PATIENT
  Age: 21 Year
  Sex: Female
  Weight: 120 kg

DRUGS (3)
  1. NEXPLANON [Suspect]
     Active Substance: ETONOGESTREL
     Indication: CONTRACEPTION
     Dosage: 68 MILLIGRAM, ON THE RIGHT UPPER ARM
     Route: 059
     Dates: start: 20171002, end: 20200630
  2. DESOGESTREL [Concomitant]
     Active Substance: DESOGESTREL
     Indication: HAEMORRHAGE
     Dosage: DAILY
     Route: 048
  3. TOPIRAMATE. [Concomitant]
     Active Substance: TOPIRAMATE
     Dosage: 50 MILLIGRAM, BID

REACTIONS (2)
  - Device breakage [Recovered/Resolved]
  - Complication of device removal [Recovered/Resolved]

NARRATIVE: CASE EVENT DATE: 20200630
